FAERS Safety Report 9414548 (Version 1)
Quarter: 2013Q3

REPORT INFORMATION
  Report Type: Spontaneous
  Country: IT (occurrence: IT)
  Receive Date: 20130717
  Receipt Date: 20130717
  Transmission Date: 20140515
  Serious: Yes (Other)
  Sender: FDA-Public Use
  Company Number: GER/ITL/13/0030698

PATIENT
  Age: 47 Year
  Sex: Male

DRUGS (5)
  1. RISPERIDONE (RISPERIDONE) [Suspect]
     Indication: MENTAL DISORDER
     Route: 048
     Dates: start: 20120901, end: 20120930
  2. TEGRETOL (CARBAMAZEPINE) UNKNOWN [Concomitant]
  3. VALIUM (DIAZEPAM) [Concomitant]
  4. DINTOINA (PHENYTOIN SODIUM) [Concomitant]
  5. KEPPRA (LEVETIRACETAM) [Concomitant]

REACTIONS (4)
  - Conduct disorder [None]
  - Psychotic disorder [None]
  - Drug ineffective [None]
  - Hepatotoxicity [None]
